FAERS Safety Report 21740066 (Version 1)
Quarter: 2022Q4

REPORT INFORMATION
  Report Type: Report from Study
  Country: IN (occurrence: IN)
  Receive Date: 20221216
  Receipt Date: 20221216
  Transmission Date: 20230113
  Serious: Yes (Death)
  Sender: FDA-Public Use
  Company Number: IN-002147023-PHHY2017IN137759

PATIENT
  Age: 51 Year
  Sex: Male

DRUGS (1)
  1. GLIVEC [Suspect]
     Active Substance: IMATINIB MESYLATE
     Indication: Chronic myeloid leukaemia
     Dosage: 800 MG, UNK, (2 X 400MG)
     Route: 065

REACTIONS (4)
  - Death [Fatal]
  - Haemorrhoidal haemorrhage [Unknown]
  - Hyperuricaemia [Unknown]
  - Gout [Unknown]

NARRATIVE: CASE EVENT DATE: 20220301
